FAERS Safety Report 7734172-8 (Version None)
Quarter: 2011Q3

REPORT INFORMATION
  Report Type: 
  Country: None (occurrence: None)
  Receive Date: 20110907
  Receipt Date: 20110826
  Transmission Date: 20111222
  Serious: Yes (Other)
  Sender: FDA-Public Use
  Company Number: FR-UCBSA-029255

PATIENT
  Sex: Male
  Weight: 80 kg

DRUGS (3)
  1. NEURONTIN [Concomitant]
     Indication: EPILEPSY
     Route: 048
     Dates: start: 20050101
  2. TEGRETOL [Concomitant]
     Indication: EPILEPSY
     Dosage: 400 MG + 600 MG
     Route: 048
     Dates: start: 19900101
  3. VIMPAT [Suspect]
     Indication: EPILEPSY
     Dosage: 100 MG + 250 MG
     Route: 048
     Dates: start: 20090601, end: 20110101

REACTIONS (1)
  - ECZEMA [None]
